FAERS Safety Report 15554810 (Version 2)
Quarter: 2018Q4

REPORT INFORMATION
  Report Type: Spontaneous
  Country: US (occurrence: US)
  Receive Date: 20181026
  Receipt Date: 20181123
  Transmission Date: 20190205
  Serious: No
  Sender: FDA-Public Use
  Company Number: US-ASTRAZENECA-2018SF25195

PATIENT
  Age: 62 Year
  Sex: Male
  Weight: 131.5 kg

DRUGS (9)
  1. METFORMIN [Concomitant]
     Active Substance: METFORMIN HYDROCHLORIDE
     Indication: BLOOD GLUCOSE DECREASED
     Route: 048
  2. GLIPIZIDE. [Concomitant]
     Active Substance: GLIPIZIDE
     Indication: BLOOD GLUCOSE DECREASED
     Route: 048
     Dates: end: 2018
  3. BYDUREON [Suspect]
     Active Substance: EXENATIDE
     Indication: HALLUCINATION
     Route: 058
     Dates: start: 2018
  4. OSTEOBIFLEX [Concomitant]
     Indication: RHEUMATOID ARTHRITIS
     Route: 048
  5. LISINOPRIL. [Suspect]
     Active Substance: LISINOPRIL
     Indication: BLOOD PRESSURE ABNORMAL
     Route: 048
     Dates: end: 2018
  6. GLIMEPIRIDE. [Concomitant]
     Active Substance: GLIMEPIRIDE
     Indication: BLOOD GLUCOSE DECREASED
     Route: 048
     Dates: start: 2018
  7. LORATADINE. [Concomitant]
     Active Substance: LORATADINE
     Indication: HYPERSENSITIVITY
     Route: 048
  8. LISINOPRIL. [Suspect]
     Active Substance: LISINOPRIL
     Indication: BLOOD PRESSURE ABNORMAL
     Dosage: 20/25MG, DAILY
     Route: 048
     Dates: start: 2018
  9. HUMALOG SSI [Concomitant]
     Indication: BLOOD GLUCOSE DECREASED

REACTIONS (9)
  - Renal impairment [Not Recovered/Not Resolved]
  - Device malfunction [Unknown]
  - Hallucination [Recovered/Resolved]
  - Product use in unapproved indication [Unknown]
  - Rheumatoid arthritis [Not Recovered/Not Resolved]
  - Memory impairment [Not Recovered/Not Resolved]
  - Diabetes mellitus inadequate control [Recovered/Resolved]
  - Diabetes mellitus [Not Recovered/Not Resolved]
  - Off label use [Unknown]

NARRATIVE: CASE EVENT DATE: 2018
